FAERS Safety Report 19321679 (Version 1)
Quarter: 2021Q2

REPORT INFORMATION
  Report Type: Not Available
  Country: None (occurrence: None)
  Receive Date: 20210527
  Receipt Date: 20210527
  Transmission Date: 20210717
  Serious: No
  Sender: FDA-Public Use
  Company Number: US-AKORN-166770

PATIENT
  Age: 58 Year
  Sex: Female

DRUGS (1)
  1. CLOBETASOL PROPIONATE SHAMPOO [Suspect]
     Active Substance: CLOBETASOL PROPIONATE

REACTIONS (6)
  - Alopecia [None]
  - Drug ineffective [Recovered/Resolved]
  - Pruritus [None]
  - Skin irritation [None]
  - Eczema [None]
  - Psoriasis [None]
